FAERS Safety Report 13656903 (Version 2)
Quarter: 2017Q3

REPORT INFORMATION
  Report Type: Report from Study
  Country: US (occurrence: US)
  Receive Date: 20170615
  Receipt Date: 20170802
  Transmission Date: 20171127
  Serious: Yes (Other)
  Sender: FDA-Public Use
  Company Number: US-ASTRAZENECA-2016SF11343

PATIENT
  Age: 893 Month
  Sex: Female
  Weight: 86.2 kg

DRUGS (15)
  1. QVAR [Concomitant]
     Active Substance: BECLOMETHASONE DIPROPIONATE
     Indication: ASTHMA
     Dosage: 80MCG 8ACT 2 PUFFS EACH MORNING AND 1 PUFF EACH EVENING
     Route: 055
     Dates: start: 2008
  2. METFORMIN [Concomitant]
     Active Substance: METFORMIN HYDROCHLORIDE
     Indication: TYPE 2 DIABETES MELLITUS
     Route: 048
     Dates: start: 200009
  3. KEFLEX [Concomitant]
     Active Substance: CEPHALEXIN
     Indication: BRONCHITIS
     Route: 048
     Dates: start: 20161016
  4. ATORVASTATIN [Concomitant]
     Active Substance: ATORVASTATIN
     Indication: BLOOD CHOLESTEROL INCREASED
     Route: 048
     Dates: start: 2000
  5. FERREX [Concomitant]
     Indication: ANAEMIA
     Route: 048
     Dates: start: 201403
  6. FENOFIBRATE. [Concomitant]
     Active Substance: FENOFIBRATE
     Indication: BLOOD CHOLESTEROL INCREASED
     Route: 048
     Dates: start: 2000
  7. COUMADIN [Concomitant]
     Active Substance: WARFARIN SODIUM
     Indication: ATRIAL FIBRILLATION
     Dosage: DAILY
     Route: 048
     Dates: start: 201505
  8. XOPENEX [Concomitant]
     Active Substance: LEVALBUTEROL HYDROCHLORIDE
     Indication: ASTHMA
     Dosage: AS REQUIRED
     Route: 055
     Dates: start: 2008
  9. FLONASE [Concomitant]
     Active Substance: FLUTICASONE PROPIONATE
     Indication: ASTHMA
     Dosage: 2 SPRAYS TO EACH NOSTRIL EACH MORNING, AND 1 SPRAY TO EACH NOSTRIL EACH EVENING
     Route: 045
     Dates: start: 2008
  10. PREMARIN CREAM [Concomitant]
     Indication: VULVOVAGINAL DRYNESS
     Route: 067
     Dates: start: 2015
  11. BYDUREON [Suspect]
     Active Substance: EXENATIDE
     Indication: TYPE 2 DIABETES MELLITUS
     Route: 058
     Dates: start: 201603
  12. LEVOTHYROXINE. [Concomitant]
     Active Substance: LEVOTHYROXINE
     Indication: THYROID DISORDER
     Route: 048
     Dates: start: 2012
  13. COUMADIN [Concomitant]
     Active Substance: WARFARIN SODIUM
     Indication: ATRIAL FIBRILLATION
     Route: 048
  14. GLIPIZIDE. [Concomitant]
     Active Substance: GLIPIZIDE
     Indication: TYPE 2 DIABETES MELLITUS
     Route: 048
  15. FUROSEMIDE. [Concomitant]
     Active Substance: FUROSEMIDE
     Indication: ATRIAL FIBRILLATION
     Route: 048
     Dates: start: 2014

REACTIONS (13)
  - Hepatic cirrhosis [Not Recovered/Not Resolved]
  - Underdose [Unknown]
  - Drug dose omission [Not Recovered/Not Resolved]
  - Respiratory tract infection [Recovered/Resolved]
  - Injection site mass [Unknown]
  - Injection site erythema [Recovered/Resolved]
  - Cystitis [Recovered/Resolved]
  - Bronchitis [Not Recovered/Not Resolved]
  - Injection site pruritus [Unknown]
  - Condition aggravated [Unknown]
  - Insurance issue [Unknown]
  - Atrial fibrillation [Recovered/Resolved]
  - Product quality issue [Unknown]

NARRATIVE: CASE EVENT DATE: 201605
